FAERS Safety Report 5062877-9 (Version None)
Quarter: 2006Q3

REPORT INFORMATION
  Report Type: 
  Country: None (occurrence: None)
  Receive Date: 20060724
  Receipt Date: 20060707
  Transmission Date: 20061208
  Serious: Yes (Hospitalization, Other)
  Sender: FDA-Public Use
  Company Number: CHNY2006AU01940

PATIENT
  Age: 59 Year
  Sex: Male

DRUGS (10)
  1. NICOTINE [Suspect]
     Dosage: 21 MG, QD, TRANSDERMAL
     Route: 062
     Dates: start: 20060618, end: 20060620
  2. ADALAT [Concomitant]
  3. MINAX (METOPROLOL TARTRATE) [Concomitant]
  4. ZANTAC (RANITDINE HYDROCHLORIDE) [Concomitant]
  5. MORPHINE [Concomitant]
  6. LIORESAL [Concomitant]
  7. DUCENE (DOXEPIN HYDROCHLORIDE) [Concomitant]
  8. DIAMICRON (GLICLAZIDE) [Concomitant]
  9. ACETAMINOPHEN [Concomitant]
  10. FUROSEMIDE [Concomitant]

REACTIONS (15)
  - ABDOMINAL DISTENSION [None]
  - BLOOD PRESSURE DIASTOLIC DECREASED [None]
  - CAROTID PULSE ABNORMAL [None]
  - DIABETES MELLITUS NON-INSULIN-DEPENDENT [None]
  - FEELING ABNORMAL [None]
  - HEPATOMEGALY [None]
  - HYPERTENSION [None]
  - INCORRECT DOSE ADMINISTERED [None]
  - INTESTINAL OBSTRUCTION [None]
  - INTESTINAL PERFORATION [None]
  - MUSCLE DISORDER [None]
  - POOR QUALITY DRUG ADMINISTERED [None]
  - SPINAL DISORDER [None]
  - TREATMENT NONCOMPLIANCE [None]
  - VOMITING [None]
